FAERS Safety Report 12436523 (Version 2)
Quarter: 2016Q3

REPORT INFORMATION
  Report Type: Spontaneous
  Country: HU (occurrence: HU)
  Receive Date: 20160606
  Receipt Date: 20160707
  Transmission Date: 20161109
  Serious: Yes (Hospitalization, Other)
  Sender: FDA-Public Use
  Company Number: HU-PFIZER INC-2016281533

PATIENT
  Age: 72 Year
  Sex: Female

DRUGS (2)
  1. SUTENT [Suspect]
     Active Substance: SUNITINIB MALATE
     Indication: RENAL CANCER METASTATIC
     Dosage: 50 MG, CYCLIC (ONCE DAILY FOR 4/2 DOSING SCHEME)
     Route: 048
     Dates: start: 20090305, end: 201207
  2. SUTENT [Suspect]
     Active Substance: SUNITINIB MALATE
     Dosage: 50 MG, CYCLIC (ONCE DAILY FOR 4/2 DOSING SCHEME)
     Route: 048
     Dates: start: 201211

REACTIONS (5)
  - Ascites [Unknown]
  - Blood creatinine increased [Unknown]
  - Hypothyroidism [Unknown]
  - Disease progression [Unknown]
  - Renal cancer metastatic [Unknown]

NARRATIVE: CASE EVENT DATE: 201403
